FAERS Safety Report 4315246-0 (Version None)
Quarter: 2004Q1

REPORT INFORMATION
  Report Type: 
  Country: None (occurrence: None)
  Receive Date: 20040310
  Receipt Date: 20040226
  Transmission Date: 20041129
  Serious: Yes (Hospitalization)
  Sender: FDA-Public Use
  Company Number: FLUV00304000458

PATIENT
  Age: 69 Year
  Weight: 80 kg

DRUGS (7)
  1. LUVOX [Suspect]
     Indication: DEPRESSION
     Dosage: 50 MG DAILY PO
     Route: 048
     Dates: start: 20010827, end: 20040128
  2. CABERGOLINE [Suspect]
     Indication: PARKINSON'S DISEASE
     Dosage: 3 MG DAILY UNK, 2 MG DAILY UNK, 1 MG DAILY UNK
     Dates: start: 20000106, end: 20040128
  3. CABERGOLINE [Suspect]
     Indication: PARKINSON'S DISEASE
     Dosage: 3 MG DAILY UNK, 2 MG DAILY UNK, 1 MG DAILY UNK
     Dates: start: 20040129, end: 20040130
  4. CABERGOLINE [Suspect]
     Indication: PARKINSON'S DISEASE
     Dosage: 3 MG DAILY UNK, 2 MG DAILY UNK, 1 MG DAILY UNK
     Dates: start: 20040131, end: 20040201
  5. AKINETON [Concomitant]
  6. CARBIDOPA AND LEVODOPA [Concomitant]
  7. SERMION (NICERGOLINE) [Concomitant]

REACTIONS (5)
  - BLOOD CREATINE PHOSPHOKINASE INCREASED [None]
  - BLOOD LACTATE DEHYDROGENASE INCREASED [None]
  - CARDIAC FAILURE [None]
  - MYOGLOBIN BLOOD INCREASED [None]
  - OEDEMA PERIPHERAL [None]
